FAERS Safety Report 10644906 (Version 2)
Quarter: 2014Q4

REPORT INFORMATION
  Report Type: Spontaneous
  Country: ES (occurrence: ES)
  Receive Date: 20141211
  Receipt Date: 20141211
  Transmission Date: 20150529
  Serious: Yes (Death, Hospitalization)
  Sender: FDA-Public Use
  Company Number: ES-ACCORD-027480

PATIENT
  Age: 82 Year
  Sex: Male

DRUGS (1)
  1. METHOTREXATE [Suspect]
     Active Substance: METHOTREXATE
     Indication: PSORIASIS
     Route: 048

REACTIONS (8)
  - Pancytopenia [Unknown]
  - Skin ulcer [Unknown]
  - Renal impairment [Unknown]
  - Mouth ulceration [Unknown]
  - Dysphagia [Unknown]
  - Malaise [Unknown]
  - Toxicity to various agents [Unknown]
  - Multi-organ failure [Fatal]
